FAERS Safety Report 8763775 (Version 6)
Quarter: 2013Q1

REPORT INFORMATION
  Report Type: Report from Study
  Country: JP (occurrence: JP)
  Receive Date: 20120831
  Receipt Date: 20130115
  Transmission Date: 20140127
  Serious: Yes (Death, Hospitalization)
  Sender: FDA-Public Use
  Company Number: PHHO2011JP021574

PATIENT
  Age: 57 Year
  Sex: Male
  Weight: 61 kg

DRUGS (30)
  1. ALISKIREN [Suspect]
     Indication: CARDIAC FAILURE CHRONIC
     Dosage: UNK
     Route: 048
     Dates: end: 20120730
  2. ENALAPRIL [Suspect]
     Indication: CARDIAC FAILURE CHRONIC
     Dosage: UNK
     Route: 048
     Dates: end: 20120730
  3. SLOW K [Suspect]
     Indication: ELECTROLYTE SUBSTITUTION THERAPY
     Dosage: 3000 MG, DAILY
     Route: 048
  4. SLOW K [Suspect]
     Dosage: 1800 MG, DAILY
     Route: 048
     Dates: start: 20120517
  5. SLOW K [Suspect]
     Dosage: 4800 MG, DAILY
     Route: 048
     Dates: start: 20120618
  6. SLOW K [Suspect]
     Dosage: 1800 MG, DAILY
     Route: 048
  7. SLOW K [Suspect]
     Dosage: 4800 MG, DAILY
     Route: 048
  8. SELARA [Suspect]
     Dosage: 25 MG, UNK
     Route: 048
     Dates: start: 20120730
  9. NITRODERM TTS [Concomitant]
     Indication: CARDIAC FAILURE CHRONIC
     Dosage: 25 MG, UNK
     Route: 062
  10. ANCARON [Concomitant]
     Indication: VENTRICULAR TACHYCARDIA
     Dosage: 150 MG, DAILY
     Route: 048
  11. ANCARON [Concomitant]
     Indication: ATRIAL FIBRILLATION
     Dosage: 400 MG, DAILY
     Route: 048
     Dates: start: 20120618
  12. ANCARON [Concomitant]
     Dosage: 400 MG, DAILY
     Route: 048
     Dates: start: 20120713
  13. DIGOXIN [Concomitant]
     Indication: ATRIAL FIBRILLATION
     Dosage: 0.125 MG, QID
     Route: 048
  14. DIGOXIN [Concomitant]
     Indication: CARDIAC FAILURE CHRONIC
  15. LASIX [Concomitant]
     Indication: CARDIAC FAILURE CHRONIC
     Dosage: 20 MG, UNK
     Route: 048
  16. LASIX [Concomitant]
     Dosage: 40 MG, UNK
     Route: 048
  17. LASIX [Concomitant]
     Dosage: 50 MG, DAILY
     Dates: start: 20121007
  18. FLUITRAN [Concomitant]
     Indication: CARDIAC FAILURE CHRONIC
     Dosage: 1 MG, UNK
     Route: 048
  19. FLUITRAN [Concomitant]
     Dosage: 2 MG, UNK
     Route: 048
  20. ARTIST [Concomitant]
     Indication: ATRIAL FIBRILLATION
     Dosage: 10 MG, DAILY
     Route: 048
  21. ARTIST [Concomitant]
     Indication: CARDIAC FAILURE CHRONIC
     Dosage: 7.5 MG, DAILY
     Route: 048
     Dates: start: 20120725
  22. ACARDI [Concomitant]
     Indication: CARDIAC FAILURE CHRONIC
     Dosage: 1.25 MG,
     Route: 048
     Dates: end: 20120701
  23. ACARDI [Concomitant]
     Dosage: 1.25 MG,
     Route: 048
  24. ACINON [Concomitant]
     Dosage: 300 MG, UNK
     Route: 048
  25. WARFARIN [Concomitant]
     Indication: THROMBOSIS PROPHYLAXIS
     Dosage: 1.5 MG, DAILY
     Route: 048
  26. WARFARIN [Concomitant]
     Dosage: 1 MG, DAILY
     Route: 048
  27. WARFARIN [Concomitant]
     Dosage: 0.5 MG, DAILY
     Route: 048
  28. FLORID-D [Concomitant]
     Indication: TINEA PEDIS
  29. MYSLEE [Concomitant]
     Indication: INSOMNIA
     Dosage: 5 MG, UNK
     Route: 048
     Dates: start: 20111228
  30. COVERSYL [Concomitant]
     Indication: CARDIAC FAILURE CHRONIC
     Dosage: 2 MG, UNK
     Route: 048
     Dates: start: 20120730

REACTIONS (2)
  - Cardiac failure [Fatal]
  - Hyperkalaemia [Recovering/Resolving]
